FAERS Safety Report 10210471 (Version 2)
Quarter: 2014Q2

REPORT INFORMATION
  Report Type: Spontaneous
  Country: US (occurrence: US)
  Receive Date: 20140602
  Receipt Date: 20140627
  Transmission Date: 20141212
  Serious: Yes (Other)
  Sender: FDA-Public Use
  Company Number: US-SA-2014SA071460

PATIENT
  Sex: Female

DRUGS (3)
  1. AMBIEN [Suspect]
     Indication: PRODUCT USED FOR UNKNOWN INDICATION
     Route: 065
  2. AMBIEN [Suspect]
     Indication: PRODUCT USED FOR UNKNOWN INDICATION
     Route: 065
  3. AMBIEN [Suspect]
     Indication: PRODUCT USED FOR UNKNOWN INDICATION
     Route: 065

REACTIONS (7)
  - Breast cancer [Unknown]
  - Pain [Unknown]
  - Dizziness [Unknown]
  - Retching [Unknown]
  - Insomnia [Unknown]
  - Headache [Unknown]
  - Asthenia [Unknown]
